FAERS Safety Report 6983404-2 (Version None)
Quarter: 2010Q3

REPORT INFORMATION
  Report Type: 
  Country: None (occurrence: None)
  Receive Date: 20100914
  Receipt Date: 20100914
  Transmission Date: 20110219
  Serious: Yes (Life-Threatening)
  Sender: FDA-Public Use
  Company Number: None

PATIENT
  Age: 72 Year
  Sex: Female
  Weight: 78.0187 kg

DRUGS (2)
  1. BREVITAL SODIUM [Suspect]
  2. KETAMINE HCL [Suspect]

REACTIONS (9)
  - APHASIA [None]
  - BLOOD PRESSURE DECREASED [None]
  - CHEST DISCOMFORT [None]
  - DRUG INEFFECTIVE [None]
  - ENDOTRACHEAL INTUBATION COMPLICATION [None]
  - FOREIGN BODY [None]
  - OROPHARYNGEAL PAIN [None]
  - SWOLLEN TONGUE [None]
  - TONGUE ULCERATION [None]
